FAERS Safety Report 4383156-9 (Version None)
Quarter: 2004Q2

REPORT INFORMATION
  Report Type: 
  Country: None (occurrence: None)
  Receive Date: 20040618
  Receipt Date: 20040608
  Transmission Date: 20050107
  Serious: Yes (Other)
  Sender: FDA-Public Use
  Company Number: US-JNJFOC-20040602428

PATIENT
  Age: 42 Year
  Sex: Female

DRUGS (6)
  1. DURAGESIC [Suspect]
     Indication: PAIN
     Dosage: SEE IMAGE TRANSDERMAL
     Route: 062
     Dates: end: 20040501
  2. DURAGESIC [Suspect]
     Indication: PAIN
     Dosage: SEE IMAGE TRANSDERMAL
     Route: 062
     Dates: start: 20040501, end: 20040608
  3. DURAGESIC [Suspect]
     Indication: PAIN
     Dosage: SEE IMAGE TRANSDERMAL
     Route: 062
     Dates: start: 20030701
  4. LORICET (LORAZEPAM) [Concomitant]
  5. SYNTHROID [Concomitant]
  6. ELAVIL [Concomitant]

REACTIONS (10)
  - CRYING [None]
  - DEPRESSION SUICIDAL [None]
  - DRUG WITHDRAWAL SYNDROME [None]
  - FORMICATION [None]
  - HYPERHIDROSIS [None]
  - MUSCLE TWITCHING [None]
  - NAUSEA [None]
  - PRURITUS [None]
  - SLEEP APNOEA SYNDROME [None]
  - SOMNOLENCE [None]
